FAERS Safety Report 6971089-0 (Version None)
Quarter: 2010Q3

REPORT INFORMATION
  Report Type: 
  Country: None (occurrence: None)
  Receive Date: 20100908
  Receipt Date: 20100831
  Transmission Date: 20110219
  Serious: Yes (Death, Other)
  Sender: FDA-Public Use
  Company Number: US-GENZYME-MOZO-1000384

PATIENT

DRUGS (1)
  1. MOZOBIL [Suspect]
     Indication: HAEMATOPOIETIC STEM CELL MOBILISATION

REACTIONS (1)
  - MULTIPLE MYELOMA [None]
